FAERS Safety Report 23836946 (Version 1)
Quarter: 2024Q2

REPORT INFORMATION
  Report Type: Spontaneous
  Country: SA (occurrence: SA)
  Receive Date: 20240509
  Receipt Date: 20240509
  Transmission Date: 20240717
  Serious: Yes (Other)
  Sender: FDA-Public Use
  Company Number: SA-AMGEN-SAUSP2024088831

PATIENT

DRUGS (2)
  1. ADALIMUMAB [Suspect]
     Active Substance: ADALIMUMAB\ISOPROPYL ALCOHOL
     Indication: Crohn^s disease
     Dosage: UNK
     Route: 065
  2. ADALIMUMAB [Suspect]
     Active Substance: ADALIMUMAB\ISOPROPYL ALCOHOL
     Indication: Colitis ulcerative

REACTIONS (11)
  - Cholangitis sclerosing [Unknown]
  - Peripheral spondyloarthritis [Unknown]
  - Ankylosing spondylitis [Unknown]
  - Pyoderma gangrenosum [Unknown]
  - Embolism venous [Unknown]
  - Uveitis [Unknown]
  - Autoimmune hepatitis [Unknown]
  - Aphthous ulcer [Unknown]
  - Enthesopathy [Unknown]
  - Erythema nodosum [Unknown]
  - Sacroiliitis [Unknown]
